FAERS Safety Report 7331848-1 (Version None)
Quarter: 2011Q1

REPORT INFORMATION
  Report Type: 
  Country: None (occurrence: None)
  Receive Date: 20110304
  Receipt Date: 20100630
  Transmission Date: 20110831
  Serious: No
  Sender: FDA-Public Use
  Company Number: US-PFIZER INC-2010081826

PATIENT
  Sex: Female

DRUGS (3)
  1. REVLIMID [Suspect]
     Indication: MULTIPLE MYELOMA
     Dosage: 25 MG, DAILY FOR 21 DAYS
     Route: 048
     Dates: start: 20090915, end: 20090920
  2. REVLIMID [Suspect]
     Dosage: 25 MG, DAILY FOR 21 DAYS
     Route: 048
     Dates: start: 20091008
  3. DILANTIN [Suspect]
     Indication: CONVULSION
     Dosage: 100 MG, 3X/DAY
     Route: 048
     Dates: start: 20090827, end: 20090929

REACTIONS (1)
  - RASH PRURITIC [None]
